FAERS Safety Report 7609372-8 (Version None)
Quarter: 2011Q3

REPORT INFORMATION
  Report Type: 
  Country: None (occurrence: None)
  Receive Date: 20110713
  Receipt Date: 20110713
  Transmission Date: 20111222
  Serious: Yes (Other)
  Sender: FDA-Public Use
  Company Number: None

PATIENT
  Age: 55 Year
  Sex: Female
  Weight: 100 kg

DRUGS (1)
  1. ADVAIR DISKUS 100/50 [Suspect]
     Indication: ASTHMA
     Dosage: 100/50 BID ORAL 6-7 YEARS
     Route: 048

REACTIONS (8)
  - MUSCULAR WEAKNESS [None]
  - QUALITY OF LIFE DECREASED [None]
  - FAMILY STRESS [None]
  - FATIGUE [None]
  - PAIN IN EXTREMITY [None]
  - IMPAIRED WORK ABILITY [None]
  - BONE PAIN [None]
  - CATARACT [None]
